FAERS Safety Report 18058834 (Version 1)
Quarter: 2020Q3

REPORT INFORMATION
  Report Type: Spontaneous
  Country: GB (occurrence: GB)
  Receive Date: 20200723
  Receipt Date: 20200723
  Transmission Date: 20201103
  Serious: Yes (Other)
  Sender: FDA-Public Use
  Company Number: GB-MYLANLABS-2020M1065017

PATIENT
  Age: 69 Year
  Sex: Female
  Weight: 97 kg

DRUGS (20)
  1. LEVOTHYROXINE. [Concomitant]
     Active Substance: LEVOTHYROXINE
     Indication: HYPOTHYROIDISM
     Dosage: 1 DOSAGE FORM, QD (MORNING TO TREAT UNDERACTI)
     Dates: start: 20200204
  2. FOSTAIR [Concomitant]
     Active Substance: BECLOMETHASONE\FORMOTEROL
     Dosage: 4 DOSAGE FORM, QD (PUFFS)
     Dates: start: 20190718
  3. HYPROMELLOSE [Concomitant]
     Active Substance: HYPROMELLOSES
     Dosage: USE AS DIRECTED
     Dates: start: 20190718
  4. MONTELUKAST [Concomitant]
     Active Substance: MONTELUKAST SODIUM
     Dosage: 1 DOSAGE FORM, QD (NIGHT)
     Dates: start: 20190718
  5. OMEPRAZOLE. [Concomitant]
     Active Substance: OMEPRAZOLE
     Indication: GASTRIC PH DECREASED
     Dosage: 1 DOSAGE FORM, QD
     Dates: start: 20190718
  6. PREDNISOLONE. [Concomitant]
     Active Substance: PREDNISOLONE
     Dosage: 40 MILLIGRAM, QD (MORNING)
     Dates: start: 20200609, end: 20200618
  7. FLUCONAZOLE. [Concomitant]
     Active Substance: FLUCONAZOLE
     Dosage: TAKE ONE AS DIRECTED CONTINUE AFTER 150MG FLUCONAZOLE STOPS WHILST TAKING AMOXIL
     Dates: start: 20200612, end: 20200619
  8. MIRTAZAPINE. [Concomitant]
     Active Substance: MIRTAZAPINE
     Dosage: 1 DOSAGE FORM, QD (MORNING)
     Dates: start: 20190718
  9. SALBUTAMOL [Concomitant]
     Active Substance: ALBUTEROL
     Dosage: 1 DOSAGE FORM (3?4 TIMES/DAY)
     Route: 055
     Dates: start: 20190718
  10. ESCITALOPRAM [Suspect]
     Active Substance: ESCITALOPRAM OXALATE
     Indication: PRODUCT USED FOR UNKNOWN INDICATION
     Dosage: 10 MILLIGRAM, QD
     Dates: start: 20200528
  11. CANDESARTAN. [Concomitant]
     Active Substance: CANDESARTAN
     Dosage: 1 DOSAGE FORM, QD
     Dates: start: 20190718
  12. FOLIC ACID. [Concomitant]
     Active Substance: FOLIC ACID
     Dosage: 1 DOSAGE FORM, QD
     Dates: start: 20191218
  13. FUROSEMIDE. [Concomitant]
     Active Substance: FUROSEMIDE
     Dosage: 1 DOSAGE FORM, QD (MORNING TO REMOVE EXCESS F)
     Dates: start: 20190718
  14. CODEINE PHOSPHATE [Concomitant]
     Active Substance: CODEINE PHOSPHATE
     Dosage: ONE OR TWO TO BE TAKEN UP TO FOUR TIMES DAILY T...
     Dates: start: 20190718
  15. CETIRIZINE [Concomitant]
     Active Substance: CETIRIZINE HYDROCHLORIDE
     Dosage: 2 DOSAGE FORM, QD (FOR ONE WEEK AND THEN RETU)
     Dates: start: 20190718
  16. HYDROXOCOBALAMIN [Concomitant]
     Active Substance: HYDROXOCOBALAMIN
     Dosage: AS DIRECTED
     Route: 030
     Dates: start: 20200414, end: 20200417
  17. SPIRIVA [Concomitant]
     Active Substance: TIOTROPIUM BROMIDE MONOHYDRATE
     Dosage: 2 DOSAGE FORM, QD
     Route: 055
     Dates: start: 20190718
  18. FEBUXOSTAT. [Concomitant]
     Active Substance: FEBUXOSTAT
     Dosage: 1 DOSAGE FORM, QD
     Dates: start: 20190718
  19. AMOXICILLIN. [Concomitant]
     Active Substance: AMOXICILLIN
     Dosage: 3 DOSAGE FORM, QD
     Dates: start: 20200612, end: 20200619
  20. SERTRALINE [Concomitant]
     Active Substance: SERTRALINE HYDROCHLORIDE
     Indication: ANXIETY
     Dosage: 1 DOSAGE FORM, QD
     Dates: start: 20200624

REACTIONS (1)
  - Thirst [Recovered/Resolved]

NARRATIVE: CASE EVENT DATE: 20200701
